FAERS Safety Report 13589533 (Version 1)
Quarter: 2017Q2

REPORT INFORMATION
  Report Type: Spontaneous
  Country: US (occurrence: US)
  Receive Date: 20170529
  Receipt Date: 20170529
  Transmission Date: 20170830
  Serious: No
  Sender: FDA-Public Use
  Company Number: US-HORIZON-PEN-0241-2017

PATIENT
  Age: 52 Year
  Sex: Female

DRUGS (4)
  1. PENNSAID [Suspect]
     Active Substance: DICLOFENAC SODIUM
     Indication: ARTHRALGIA
     Dosage: 2 PUMPS TWICE DAILY
     Route: 061
  2. SYNTHROID [Concomitant]
     Active Substance: LEVOTHYROXINE SODIUM
  3. ESTRADIOL. [Concomitant]
     Active Substance: ESTRADIOL
  4. LOSARTAN. [Concomitant]
     Active Substance: LOSARTAN

REACTIONS (4)
  - Rash [Not Recovered/Not Resolved]
  - Pruritus [Not Recovered/Not Resolved]
  - Off label use [Unknown]
  - Dry skin [Not Recovered/Not Resolved]
